FAERS Safety Report 21874783 (Version 1)
Quarter: 2023Q1

REPORT INFORMATION
  Report Type: Spontaneous
  Country: NZ (occurrence: None)
  Receive Date: 20230117
  Receipt Date: 20230117
  Transmission Date: 20230418
  Serious: Yes (Death, Hospitalization)
  Sender: FDA-Public Use
  Company Number: 2023A008830

PATIENT
  Age: 101 Year
  Sex: Male

DRUGS (1)
  1. SYMBICORT [Suspect]
     Active Substance: BUDESONIDE\FORMOTEROL FUMARATE DIHYDRATE
     Dosage: DOSE AND FREQUENCY UNKNOWN UNKNOWN
     Route: 055

REACTIONS (7)
  - Pneumonia [Fatal]
  - Nosocomial infection [Fatal]
  - Upper limb fracture [Unknown]
  - Oral pain [Unknown]
  - Weight decreased [Unknown]
  - Oral candidiasis [Unknown]
  - Product packaging quantity issue [Unknown]
